FAERS Safety Report 12719617 (Version 2)
Quarter: 2016Q3

REPORT INFORMATION
  Report Type: Report from Study
  Country: CO (occurrence: CO)
  Receive Date: 20160907
  Receipt Date: 20160930
  Transmission Date: 20161109
  Serious: Yes (Hospitalization)
  Sender: FDA-Public Use
  Company Number: PHHY2016CO030387

PATIENT
  Sex: Female
  Weight: 75 kg

DRUGS (3)
  1. SANDOSTATIN LAR DEPOT [Suspect]
     Active Substance: OCTREOTIDE ACETATE
     Indication: NEUROENDOCRINE TUMOUR
     Dosage: 30 MG, QMO
     Route: 030
     Dates: start: 20140602
  2. DOLEX [Concomitant]
     Active Substance: IBUPROFEN
     Indication: OSTEOARTHRITIS
     Dosage: 800 MG, TID
     Route: 048
  3. NIMODIPINE. [Concomitant]
     Active Substance: NIMODIPINE
     Indication: CARDIOVASCULAR DISORDER
     Route: 065

REACTIONS (8)
  - Rash [Unknown]
  - Chronic obstructive pulmonary disease [Unknown]
  - Arthritis [Unknown]
  - Pain in extremity [Unknown]
  - Hypersensitivity [Unknown]
  - Malaise [Unknown]
  - Erythema [Unknown]
  - Inflammation [Unknown]
